FAERS Safety Report 23043148 (Version 1)
Quarter: 2023Q4

REPORT INFORMATION
  Report Type: Report from Study
  Country: IT (occurrence: IT)
  Receive Date: 20231009
  Receipt Date: 20231009
  Transmission Date: 20240109
  Serious: Yes (Hospitalization)
  Sender: FDA-Public Use
  Company Number: IT-ABBVIE-5439648

PATIENT
  Age: 72 Year
  Sex: Female

DRUGS (4)
  1. CARBIDOPA\LEVODOPA [Suspect]
     Active Substance: CARBIDOPA\LEVODOPA
     Indication: Parkinson^s disease
     Dosage: TOTAL DAILY DOSE (MG): 855 ; PUMP SETTING: MD: 4,5+3 CR: 2,3 (7H), 2 (7H) ED: 3
     Route: 050
     Dates: start: 20191202
  2. CARBIDOPA\LEVODOPA [Suspect]
     Active Substance: CARBIDOPA\LEVODOPA
  3. ONGENTYS [Concomitant]
     Active Substance: OPICAPONE
     Indication: Product used for unknown indication
     Dosage: 1 TABLET
     Route: 048
  4. BENSERAZIDE HYDROCHLORIDE\LEVODOPA [Concomitant]
     Active Substance: BENSERAZIDE HYDROCHLORIDE\LEVODOPA
     Indication: Product used for unknown indication
     Dosage: 1/2 TBL, 250
     Route: 048

REACTIONS (2)
  - Fall [Not Recovered/Not Resolved]
  - Femur fracture [Not Recovered/Not Resolved]

NARRATIVE: CASE EVENT DATE: 20231002
